FAERS Safety Report 8391308-6 (Version None)
Quarter: 2012Q2

REPORT INFORMATION
  Report Type: 
  Country: None (occurrence: None)
  Receive Date: 20120529
  Receipt Date: 20111028
  Transmission Date: 20120825
  Serious: No
  Sender: FDA-Public Use
  Company Number: US-ABBOTT-11P-163-0870069-00

PATIENT
  Sex: Male
  Weight: 66.738 kg

DRUGS (3)
  1. ZEMPLAR [Suspect]
     Indication: RENAL DISORDER
     Route: 048
     Dates: start: 20101001
  2. ZEMPLAR [Suspect]
     Route: 048
     Dates: start: 20100101
  3. UNKNOWN MEDICATION [Concomitant]
     Indication: SECONDARY HYPERTENSION

REACTIONS (4)
  - RASH [None]
  - BLOOD CALCIUM INCREASED [None]
  - PRURITUS [None]
  - RESTLESS LEGS SYNDROME [None]
